FAERS Safety Report 19096329 (Version 2)
Quarter: 2021Q2

REPORT INFORMATION
  Report Type: Spontaneous
  Country: LB (occurrence: LB)
  Receive Date: 20210406
  Receipt Date: 20210506
  Transmission Date: 20210717
  Serious: Yes (Hospitalization, Other)
  Sender: FDA-Public Use
  Company Number: LB-CIPLA LTD.-2021LB02637

PATIENT

DRUGS (1)
  1. TADALAFIL. [Suspect]
     Active Substance: TADALAFIL
     Indication: ERECTILE DYSFUNCTION
     Dosage: 15 MILLIGRAM, 3 TABLETS OF TADALAFIL 5 MG
     Route: 048

REACTIONS (1)
  - Subarachnoid haemorrhage [Recovered/Resolved]
